FAERS Safety Report 4999136-6 (Version None)
Quarter: 2006Q2

REPORT INFORMATION
  Report Type: 
  Country: None (occurrence: None)
  Receive Date: 20060509
  Receipt Date: 20060424
  Transmission Date: 20061013
  Serious: Yes (Death)
  Sender: FDA-Public Use
  Company Number: US200604003737

PATIENT
  Age: 90 Year
  Sex: Female
  Weight: 38.5 kg

DRUGS (9)
  1. TERIPARATIDE (TERIPARATIDE) PEN, DISPOSABLE [Suspect]
     Indication: OSTEOPOROSIS
     Dosage: 20 UG, SUBCUTANEOUS
     Route: 058
     Dates: start: 20040611
  2. FORTEO [Concomitant]
  3. MICARDIS [Concomitant]
  4. TOPROL-XL [Concomitant]
  5. ASPIRIN [Concomitant]
  6. CALCIUM CARBONATE [Concomitant]
  7. IRON [Concomitant]
  8. LOMOTIL [Concomitant]
  9. FIBERCON (POLYCARBOPHIL CALCIUM) [Concomitant]

REACTIONS (1)
  - DEATH [None]
